FAERS Safety Report 18521699 (Version 1)
Quarter: 2020Q4

REPORT INFORMATION
  Report Type: Spontaneous
  Country: US (occurrence: US)
  Receive Date: 20201119
  Receipt Date: 20201119
  Transmission Date: 20210114
  Serious: No
  Sender: FDA-Public Use
  Company Number: US-CIPLA LTD.-2020US07411

PATIENT

DRUGS (1)
  1. GABAPENTIN. [Suspect]
     Active Substance: GABAPENTIN
     Indication: HEADACHE
     Dosage: 100 MILLIGRAM, THRICE A DAY OR TWICE A DAY, SINCE 5 YEARS
     Route: 048

REACTIONS (7)
  - Product use in unapproved indication [Unknown]
  - Gait disturbance [Not Recovered/Not Resolved]
  - Nausea [Unknown]
  - Acne [Recovered/Resolved]
  - Off label use [Unknown]
  - Product dose omission in error [Unknown]
  - Joint swelling [Not Recovered/Not Resolved]
